FAERS Safety Report 8125094-1 (Version None)
Quarter: 2012Q1

REPORT INFORMATION
  Report Type: 
  Country: None (occurrence: None)
  Receive Date: 20120209
  Receipt Date: 20120125
  Transmission Date: 20120608
  Serious: Yes (Death, Hospitalization)
  Sender: FDA-Public Use
  Company Number: GP-ROCHE-1033332

PATIENT
  Sex: Female
  Weight: 65 kg

DRUGS (2)
  1. HERCEPTIN [Suspect]
     Indication: BREAST CANCER METASTATIC
     Dosage: DOSE OF LAST TRASTUZUMAB TAKEN:390 MG, LAST DOSE PRIOR TO SAE 10 JAN 2012
     Route: 042
     Dates: start: 20110721
  2. DOCETAXEL [Suspect]
     Indication: BREAST CANCER METASTATIC
     Dosage: DOSE OF LAST DOCETAXEL TAKEN:130 MG, LAST DOSE PRIOR TO SAE 10 JAN 2012
     Route: 042
     Dates: start: 20110721

REACTIONS (1)
  - PULMONARY EMBOLISM [None]
